FAERS Safety Report 25794840 (Version 1)
Quarter: 2025Q3

REPORT INFORMATION
  Report Type: Spontaneous
  Country: JP (occurrence: JP)
  Receive Date: 20250912
  Receipt Date: 20250912
  Transmission Date: 20251020
  Serious: Yes (Other)
  Sender: BAXTER
  Company Number: JP-MLMSERVICE-20250828-PI628813-00128-1

PATIENT
  Age: 58 Year
  Sex: Female

DRUGS (8)
  1. DOXORUBICIN [Suspect]
     Active Substance: DOXORUBICIN
     Indication: Metastases to lung
     Route: 065
  2. DOXORUBICIN [Suspect]
     Active Substance: DOXORUBICIN
     Indication: Endometrial cancer
  3. PEMBROLIZUMAB [Suspect]
     Active Substance: PEMBROLIZUMAB
     Indication: Endometrial cancer
     Route: 065
  4. PEMBROLIZUMAB [Suspect]
     Active Substance: PEMBROLIZUMAB
     Indication: Metastases to lung
  5. LENVATINIB [Suspect]
     Active Substance: LENVATINIB
     Indication: Endometrial cancer
     Route: 065
  6. CARVEDILOL [Concomitant]
     Active Substance: CARVEDILOL
     Indication: Hypertension
     Route: 065
  7. LOSARTAN [Concomitant]
     Active Substance: LOSARTAN
     Route: 065
  8. SPIRONOLACTONE [Concomitant]
     Active Substance: SPIRONOLACTONE
     Indication: Hypertension
     Route: 065

REACTIONS (5)
  - Cardiac dysfunction [Recovering/Resolving]
  - Myocarditis [Recovering/Resolving]
  - Cardiotoxicity [Recovering/Resolving]
  - Left ventricular dysfunction [Recovering/Resolving]
  - Myocardial fibrosis [Recovering/Resolving]
